FAERS Safety Report 25350435 (Version 2)
Quarter: 2025Q2

REPORT INFORMATION
  Report Type: Spontaneous
  Country: US (occurrence: US)
  Receive Date: 20250523
  Receipt Date: 20250528
  Transmission Date: 20250717
  Serious: No
  Sender: SUNOVION
  Company Number: US-SUMITOMO PHARMA SWITZERLAND GMBH-2025SPA005545

PATIENT

DRUGS (2)
  1. ORGOVYX [Suspect]
     Active Substance: RELUGOLIX
     Indication: Prostate cancer
     Route: 048
  2. ORGOVYX [Suspect]
     Active Substance: RELUGOLIX
     Dosage: 120 MG, QD
     Route: 048

REACTIONS (10)
  - Urinary retention [Unknown]
  - Urinary incontinence [Unknown]
  - Blood urine [Unknown]
  - Lethargy [Unknown]
  - Dysuria [Unknown]
  - Dizziness [Unknown]
  - Fatigue [Unknown]
  - Insomnia [Not Recovered/Not Resolved]
  - Diarrhoea [Unknown]
  - Product use issue [Unknown]
